FAERS Safety Report 10749572 (Version 1)
Quarter: 2015Q1

REPORT INFORMATION
  Report Type: Spontaneous
  Country: FR (occurrence: FR)
  Receive Date: 20150129
  Receipt Date: 20150129
  Transmission Date: 20150721
  Serious: Yes (Hospitalization)
  Sender: FDA-Public Use
  Company Number: FR-ELI_LILLY_AND_COMPANY-FR201501006885

PATIENT
  Age: 52 Year
  Sex: Female

DRUGS (4)
  1. LAMICTAL [Concomitant]
     Active Substance: LAMOTRIGINE
     Indication: EPILEPSY
  2. GARDENAL                           /00023202/ [Concomitant]
     Indication: EPILEPSY
  3. CYMBALTA [Suspect]
     Active Substance: DULOXETINE HYDROCHLORIDE
     Indication: OSTEOARTHRITIS
     Dosage: 60 MG, UNK
     Route: 048
     Dates: start: 2004
  4. CYMBALTA [Suspect]
     Active Substance: DULOXETINE HYDROCHLORIDE
     Dosage: 30 MG, UNK
     Route: 048

REACTIONS (13)
  - Alcohol poisoning [Unknown]
  - Vertigo [Unknown]
  - Tinnitus [Unknown]
  - Coma [Unknown]
  - Dysphagia [Unknown]
  - Weight increased [Unknown]
  - Eating disorder [Unknown]
  - Dehydration [Unknown]
  - Muscle spasms [Unknown]
  - Seizure [Unknown]
  - Epilepsy [Unknown]
  - Off label use [Unknown]
  - Weight decreased [Unknown]
